FAERS Safety Report 5977325-1 (Version None)
Quarter: 2008Q4

REPORT INFORMATION
  Report Type: 
  Country: None (occurrence: None)
  Receive Date: 20081203
  Receipt Date: 20081121
  Transmission Date: 20090506
  Serious: Yes (Hospitalization)
  Sender: FDA-Public Use
  Company Number: PHHY2008GB29851

PATIENT
  Sex: Male

DRUGS (2)
  1. CLOZARIL [Suspect]
     Indication: SCHIZOPHRENIA
     Dosage: UNK
     Dates: start: 20011001, end: 20081112
  2. CLOZARIL [Suspect]
     Dosage: UNK

REACTIONS (2)
  - CAUSTIC INJURY [None]
  - EXPOSURE TO TOXIC AGENT [None]
